FAERS Safety Report 17978941 (Version 3)
Quarter: 2023Q4

REPORT INFORMATION
  Report Type: Spontaneous
  Country: GB (occurrence: GB)
  Receive Date: 20200703
  Receipt Date: 20231027
  Transmission Date: 20240109
  Serious: Yes (Other)
  Sender: FDA-Public Use
  Company Number: None

PATIENT
  Age: 75 Year
  Sex: Male
  Weight: 90 kg

DRUGS (12)
  1. DICLOFENAC [Suspect]
     Active Substance: DICLOFENAC
     Indication: Arthritis
  2. METFORMIN [Suspect]
     Active Substance: METFORMIN HYDROCHLORIDE
     Indication: Diabetes mellitus
  3. VOLTAROL [Suspect]
     Active Substance: DICLOFENAC SODIUM
     Indication: Arthritis
     Dosage: 1 DF, TID
  4. VOLTAROL [Suspect]
     Active Substance: DICLOFENAC SODIUM
     Indication: Gastrointestinal disorder
     Dosage: 2 DF, UNK
  5. VOLTAROL [Suspect]
     Active Substance: DICLOFENAC SODIUM
     Indication: Musculoskeletal stiffness
     Dosage: 1 DF, TID
  6. VOLTAROL [Suspect]
     Active Substance: DICLOFENAC SODIUM
     Dosage: 100 MG, QD
  7. VOLTAROL [Suspect]
     Active Substance: DICLOFENAC SODIUM
  8. APIDRA [Concomitant]
     Active Substance: INSULIN GLULISINE
     Indication: Product used for unknown indication
  9. COCODAMOL [Concomitant]
     Active Substance: ACETAMINOPHEN\CODEINE PHOSPHATE
     Indication: Product used for unknown indication
  10. EZETIMIBE [Concomitant]
     Active Substance: EZETIMIBE
     Indication: Product used for unknown indication
  11. RANITIDINE [Concomitant]
     Active Substance: RANITIDINE
     Indication: Product used for unknown indication
  12. ZOPICLONE [Concomitant]
     Active Substance: ZOPICLONE
     Indication: Product used for unknown indication

REACTIONS (6)
  - Drug dependence [Unknown]
  - Gait disturbance [Unknown]
  - Pain [Unknown]
  - Therapeutic response unexpected [Unknown]
  - Musculoskeletal stiffness [Unknown]
  - Drug ineffective [Unknown]

NARRATIVE: CASE EVENT DATE: 20180201
